FAERS Safety Report 11942336 (Version 2)
Quarter: 2016Q3

REPORT INFORMATION
  Report Type: Spontaneous
  Country: US (occurrence: US)
  Receive Date: 20160125
  Receipt Date: 20160726
  Transmission Date: 20161109
  Serious: No
  Sender: FDA-Public Use
  Company Number: US-BRISTOL-MYERS SQUIBB COMPANY-BMS-2016-004257

PATIENT
  Sex: Female
  Weight: 66 kg

DRUGS (1)
  1. ELIQUIS [Suspect]
     Active Substance: APIXABAN
     Indication: CEREBROVASCULAR ACCIDENT PROPHYLAXIS
     Dosage: 5 MG, BID
     Route: 065
     Dates: start: 20150917, end: 20160114

REACTIONS (11)
  - Throat tightness [Unknown]
  - Dyspepsia [Unknown]
  - Vision blurred [Unknown]
  - Pruritus [Unknown]
  - Malaise [Unknown]
  - Alopecia [Unknown]
  - Lymphadenopathy [Unknown]
  - Tinnitus [Unknown]
  - Musculoskeletal discomfort [Unknown]
  - Asthenia [Not Recovered/Not Resolved]
  - Skin ulcer [Unknown]
